FAERS Safety Report 26185483 (Version 1)
Quarter: 2025Q4

REPORT INFORMATION
  Report Type: Spontaneous
  Country: KR (occurrence: KR)
  Receive Date: 20251222
  Receipt Date: 20251222
  Transmission Date: 20260117
  Serious: Yes (Other)
  Sender: Kenvue
  Company Number: KR-KENVUE-20251206126

PATIENT

DRUGS (3)
  1. TYLENOL 8HR [Suspect]
     Active Substance: ACETAMINOPHEN
     Indication: Constipation
     Dosage: 1 DOSAGE FORM, EVERY OTHER DAY
     Route: 065
  2. MAGNESIUM HYDROXIDE [Suspect]
     Active Substance: MAGNESIUM HYDROXIDE
     Indication: Constipation
     Dosage: 2 DOSAGE FORM
     Route: 065
  3. MOSAPRIDE CITRATE [Suspect]
     Active Substance: MOSAPRIDE CITRATE
     Indication: Constipation
     Route: 065

REACTIONS (5)
  - Diabetes mellitus [Unknown]
  - Product use in unapproved indication [Unknown]
  - Hypertension [Unknown]
  - Hepatic enzyme increased [Recovering/Resolving]
  - Therapeutic response unexpected [Unknown]
